FAERS Safety Report 22281400 (Version 1)
Quarter: 2023Q2

REPORT INFORMATION
  Report Type: Spontaneous
  Country: CA (occurrence: CA)
  Receive Date: 20230504
  Receipt Date: 20230504
  Transmission Date: 20230722
  Serious: Yes (Other)
  Sender: FDA-Public Use
  Company Number: CA-BAXTER-2023BAX020441

PATIENT

DRUGS (2)
  1. BUPIVACAINE [Suspect]
     Active Substance: BUPIVACAINE
     Indication: Post-traumatic headache
     Dosage: 0.5 PERCENT AT AN UNSPECIFIED FREQUENCY
     Route: 065
  2. LIDOCAINE [Suspect]
     Active Substance: LIDOCAINE
     Indication: Post-traumatic headache
     Dosage: 2 PERCENT AT AN UNSPECIFIED FREQUENCY
     Route: 065

REACTIONS (2)
  - Fear of injection [Unknown]
  - Syncope [Unknown]
